FAERS Safety Report 8852216 (Version 2)
Quarter: 2012Q4

REPORT INFORMATION
  Report Type: 
  Country: US (occurrence: US)
  Receive Date: 20121022
  Receipt Date: 20121106
  Transmission Date: 20130627
  Serious: Yes (Other)
  Sender: FDA-Public Use
  Company Number: US-FRI-1000039503

PATIENT
  Age: 51 Year
  Sex: Male
  Weight: 167 kg

DRUGS (19)
  1. TEFLARO [Suspect]
     Indication: OSTEOMYELITIS
     Dosage: 1200 mg
     Route: 042
     Dates: start: 20120925
  2. ADIPEX-P [Concomitant]
     Indication: WEIGHT DECREASED
     Dosage: 37.5 MG
  3. ASPIRIN [Concomitant]
     Dosage: 81 MG
  4. MVI [Concomitant]
  5. COREG [Concomitant]
     Indication: HYPERTENSION
     Dosage: 25 MG
  6. CRESTOR [Concomitant]
     Indication: BLOOD CHOLESTEROL INCREASED
     Dosage: 10 MG QHS
  7. CYMBALTA [Concomitant]
     Indication: DEPRESSION
     Dosage: 60 MG
  8. LANOXIN [Concomitant]
     Dosage: 0.25 MG
  9. COLACE [Concomitant]
     Indication: BOWEL MOVEMENT IRREGULARITY
     Dosage: 200 MG
  10. FUROSEMIDE [Concomitant]
     Dosage: 40 MG
  11. GABAPENTIN [Concomitant]
     Dosage: 6300 MG
  12. HUMALOG [Concomitant]
     Indication: DIABETES MELLITUS
     Dosage: SLIDING SCALE TID BEFORE MEALS
  13. LANTUS [Concomitant]
     Indication: DIABETES MELLITUS
     Dosage: 112 units
  14. LISINOPRIL [Concomitant]
     Dosage: 10 MG
  15. POTASSIUM CHLORIDE [Concomitant]
     Dosage: 20 MEQ
  16. PERCOCET [Concomitant]
     Indication: PAIN
     Dosage: 5/325 MG Q4 HRS PRN
  17. OMEPRAZOLE [Concomitant]
     Indication: GASTROOESOPHAGEAL REFLUX DISEASE
     Dosage: 40 MG
  18. METFORMIN [Concomitant]
     Indication: DIABETES MELLITUS
     Dosage: 2000 MG
  19. DIGOXIN [Concomitant]

REACTIONS (3)
  - Aspartate aminotransferase increased [Not Recovered/Not Resolved]
  - Alanine aminotransferase increased [Not Recovered/Not Resolved]
  - Off label use [Not Recovered/Not Resolved]
